FAERS Safety Report 14686268 (Version 8)
Quarter: 2020Q2

REPORT INFORMATION
  Report Type: Report from Study
  Country: IT (occurrence: IT)
  Receive Date: 20180327
  Receipt Date: 20200512
  Transmission Date: 20200713
  Serious: Yes (Other)
  Sender: FDA-Public Use
  Company Number: IT-INCYTE CORPORATION-2018IN000278

PATIENT

DRUGS (3)
  1. JAKAVI [Suspect]
     Active Substance: RUXOLITINIB
     Indication: MYELOFIBROSIS
     Dosage: 30 OT, QD
     Route: 048
     Dates: start: 20170929, end: 20171121
  2. JAKAVI [Suspect]
     Active Substance: RUXOLITINIB
     Dosage: 30 OT, QD
     Route: 048
     Dates: start: 20171223, end: 20180321
  3. JAKAVI [Suspect]
     Active Substance: RUXOLITINIB
     Dosage: 30 OT, QD
     Route: 048
     Dates: start: 20180326, end: 20190314

REACTIONS (9)
  - Urinary tract infection [Not Recovered/Not Resolved]
  - Red cell distribution width increased [Unknown]
  - Haematocrit decreased [Unknown]
  - Red blood cell count decreased [Unknown]
  - Diarrhoea [Unknown]
  - Urogram abnormal [Unknown]
  - Pneumonia [Recovered/Resolved]
  - Anaemia [Unknown]
  - Platelet count increased [Unknown]

NARRATIVE: CASE EVENT DATE: 20170929
